FAERS Safety Report 6252713-7 (Version None)
Quarter: 2009Q2

REPORT INFORMATION
  Report Type: 
  Country: None (occurrence: None)
  Receive Date: 20090629
  Receipt Date: 20090619
  Transmission Date: 20091009
  Serious: Yes (Other)
  Sender: FDA-Public Use
  Company Number: 2009US002324

PATIENT
  Age: 80 Year
  Sex: Female
  Weight: 85.7 kg

DRUGS (4)
  1. LEXISCAN [Suspect]
     Indication: SCAN MYOCARDIAL PERFUSION
     Dosage: 0.4 MG, TOTAL DOSE  IV NOS
     Route: 042
     Dates: start: 20090602, end: 20090602
  2. PRILOSEC [Concomitant]
  3. ASPIRIN [Concomitant]
  4. LISINOPRIL HYDROCHLOROTHIAZID (LISINOPRIL) [Concomitant]

REACTIONS (5)
  - BLOOD PRESSURE SYSTOLIC INCREASED [None]
  - DYSPNOEA [None]
  - HEADACHE [None]
  - LETHARGY [None]
  - UNRESPONSIVE TO STIMULI [None]
